FAERS Safety Report 6442754-9 (Version None)
Quarter: 2009Q4

REPORT INFORMATION
  Report Type: 
  Country: None (occurrence: None)
  Receive Date: 20091117
  Receipt Date: 20091103
  Transmission Date: 20100525
  Serious: Yes (Other)
  Sender: FDA-Public Use
  Company Number: PHHY2009GB45522

PATIENT
  Sex: Female

DRUGS (3)
  1. CLOZARIL [Suspect]
     Indication: SCHIZOPHRENIA
     Dosage: 400 MG, UNK
     Dates: start: 20040119
  2. VENLAFAXINE [Concomitant]
     Indication: MOOD ALTERED
     Dosage: 225 MG, UNK
     Route: 048
  3. DEPAKOTE [Concomitant]
     Indication: ANXIETY
     Dosage: 250 MG, BID
     Route: 048

REACTIONS (1)
  - ELECTROCARDIOGRAM QT PROLONGED [None]
